FAERS Safety Report 9236107 (Version 1)
Quarter: 2013Q2

REPORT INFORMATION
  Report Type: Spontaneous
  Country: IE (occurrence: IE)
  Receive Date: 20130417
  Receipt Date: 20130417
  Transmission Date: 20140414
  Serious: Yes (Other)
  Sender: FDA-Public Use
  Company Number: PHHY2013IE036205

PATIENT
  Age: 53 Year
  Sex: Female

DRUGS (5)
  1. STALEVO [Suspect]
     Indication: PARKINSON^S DISEASE
     Dosage: 75 MG, TID
     Route: 065
  2. STALEVO [Suspect]
     Dosage: 75 MG, FIVE TIMES A DAY
  3. AMANTADINE [Suspect]
     Dosage: 100 MG, TID
  4. ROPINIROLE [Suspect]
     Indication: PARKINSON^S DISEASE
     Dosage: 8 MG, QD
  5. RASAGILINE [Suspect]
     Indication: PARKINSON^S DISEASE
     Dosage: 1 MG, OD
     Route: 065

REACTIONS (7)
  - Impulse-control disorder [Not Recovered/Not Resolved]
  - Compulsive shopping [Not Recovered/Not Resolved]
  - Feeling guilty [Unknown]
  - Autophobia [Unknown]
  - Suicidal ideation [Unknown]
  - Hypersexuality [Recovering/Resolving]
  - Parkinsonism [Unknown]
